FAERS Safety Report 5142523-6 (Version None)
Quarter: 2006Q4

REPORT INFORMATION
  Report Type: 
  Country: None (occurrence: None)
  Receive Date: 20061027
  Receipt Date: 20061004
  Transmission Date: 20070319
  Serious: Yes (Other)
  Sender: FDA-Public Use
  Company Number: 2005150130

PATIENT
  Age: 62 Year
  Sex: Female
  Weight: 71.2147 kg

DRUGS (2)
  1. CELEBREX [Suspect]
     Indication: ARTHRALGIA
     Dates: start: 20010201
  2. CELEBREX [Suspect]
     Indication: JOINT SWELLING
     Dates: start: 20010201

REACTIONS (1)
  - MYOCARDIAL INFARCTION [None]
